FAERS Safety Report 23516131 (Version 1)
Quarter: 2024Q1

REPORT INFORMATION
  Report Type: Report from Study
  Country: US (occurrence: US)
  Receive Date: 20240213
  Receipt Date: 20240213
  Transmission Date: 20240409
  Serious: Yes (Hospitalization, Other)
  Sender: FDA-Public Use
  Company Number: US-ABBVIE-5627713

PATIENT
  Sex: Female

DRUGS (1)
  1. RINVOQ [Suspect]
     Active Substance: UPADACITINIB
     Indication: Dermatitis atopic
     Dosage: UNKNOWN
     Route: 048
     Dates: start: 20230606

REACTIONS (5)
  - Chronic kidney disease [Not Recovered/Not Resolved]
  - Depression [Unknown]
  - Ocular discomfort [Unknown]
  - Intraocular pressure increased [Unknown]
  - Blood sodium decreased [Not Recovered/Not Resolved]
